FAERS Safety Report 12581214 (Version 2)
Quarter: 2017Q3

REPORT INFORMATION
  Report Type: Report from Study
  Country: US (occurrence: US)
  Receive Date: 20160721
  Receipt Date: 20170727
  Transmission Date: 20171127
  Serious: Yes (Hospitalization, Other)
  Sender: FDA-Public Use
  Company Number: US-GILEAD-2016-0223871

PATIENT
  Age: 58 Year
  Sex: Male
  Weight: 103 kg

DRUGS (5)
  1. IDELALISIB [Suspect]
     Active Substance: IDELALISIB
     Indication: HAEMATOLOGICAL MALIGNANCY
     Dosage: 100 MG, BID
     Route: 048
     Dates: start: 20120306, end: 20150718
  2. NORCO [Concomitant]
     Active Substance: ACETAMINOPHEN\HYDROCODONE BITARTRATE
  3. IBUPROFEN. [Concomitant]
     Active Substance: IBUPROFEN
  4. LEVAQUIN [Concomitant]
     Active Substance: LEVOFLOXACIN
  5. PERMETHRIN. [Concomitant]
     Active Substance: PERMETHRIN

REACTIONS (2)
  - Polyarthritis [Recovered/Resolved with Sequelae]
  - Sepsis [Recovered/Resolved]

NARRATIVE: CASE EVENT DATE: 20150717
